FAERS Safety Report 6126775-1 (Version None)
Quarter: 2009Q1

REPORT INFORMATION
  Report Type: 
  Country: None (occurrence: None)
  Receive Date: 20090320
  Receipt Date: 20090311
  Transmission Date: 20090719
  Serious: Yes (Other)
  Sender: FDA-Public Use
  Company Number: DE-JNJFOC-20090302828

PATIENT
  Age: 15 Year
  Sex: Female

DRUGS (9)
  1. REMICADE [Suspect]
     Dosage: 9 INFUSIONS
     Route: 042
  2. REMICADE [Suspect]
     Dosage: INFUSION #8
     Route: 042
  3. REMICADE [Suspect]
     Dosage: 6 INFUSIONS
     Route: 042
  4. REMICADE [Suspect]
     Indication: CROHN'S DISEASE
     Route: 042
  5. AZATHIOPRIM [Concomitant]
  6. SALOFALK [Concomitant]
  7. MUTAFLOR [Concomitant]
  8. UNIZINK 50 [Concomitant]
  9. FERRO SANOL DUOD [Concomitant]

REACTIONS (3)
  - BACK PAIN [None]
  - INFUSION RELATED REACTION [None]
  - TACHYCARDIA [None]
